FAERS Safety Report 6291577-2 (Version None)
Quarter: 2009Q3

REPORT INFORMATION
  Report Type: 
  Country: None (occurrence: None)
  Receive Date: 20090730
  Receipt Date: 20090717
  Transmission Date: 20100115
  Serious: Yes (Hospitalization, Other)
  Sender: FDA-Public Use
  Company Number: US-ELI_LILLY_AND_COMPANY-US200907003979

PATIENT
  Sex: Female

DRUGS (9)
  1. CYMBALTA [Suspect]
     Indication: PAIN
     Dosage: 160 MG, DAILY (1/D)
     Dates: start: 20060101
  2. CYMBALTA [Suspect]
     Dosage: 60 MG, DAILY (1/D)
  3. CYMBALTA [Suspect]
     Dosage: 30 MG, DAILY (1/D)
  4. AMBIEN [Concomitant]
     Indication: INSOMNIA
     Dosage: 1 D/F, UNK
  5. AMBIEN [Concomitant]
     Dosage: 160 MG, DAILY (1/D)
  6. LORTAB [Concomitant]
     Indication: NECK PAIN
     Dosage: 1 CI, UNK
  7. VALIUM [Concomitant]
     Indication: MUSCLE SPASMS
     Dosage: 1 MG, UNK
  8. ASCORBIC ACID [Concomitant]
     Dosage: 1 D/F, UNK
  9. BLACK COHOSH [Concomitant]

REACTIONS (19)
  - ALTERED STATE OF CONSCIOUSNESS [None]
  - CONFUSIONAL STATE [None]
  - CONVULSION [None]
  - DEHYDRATION [None]
  - DRUG INEFFECTIVE [None]
  - DYSPHAGIA [None]
  - DYSPNOEA [None]
  - FEELING ABNORMAL [None]
  - FEELING COLD [None]
  - HALLUCINATION [None]
  - HEADACHE [None]
  - HYPERHIDROSIS [None]
  - HYPOAESTHESIA [None]
  - INSOMNIA [None]
  - MANIA [None]
  - OFF LABEL USE [None]
  - OVERDOSE [None]
  - SUICIDAL IDEATION [None]
  - TREMOR [None]
